FAERS Safety Report 7518564-8 (Version None)
Quarter: 2011Q2

REPORT INFORMATION
  Report Type: 
  Country: None (occurrence: None)
  Receive Date: 20110602
  Receipt Date: 20110525
  Transmission Date: 20111010
  Serious: Yes (Other)
  Sender: FDA-Public Use
  Company Number: DE-TEVA-283723GER

PATIENT
  Sex: Female
  Weight: 110 kg

DRUGS (6)
  1. CODEINE SUL TAB [Concomitant]
     Indication: SUBSTANCE ABUSE
     Dosage: 4.5 [G/WK ]/ SOMETIMES ONLY 3G/WEEK
     Route: 048
     Dates: end: 20101209
  2. ACETAMINOPHEN [Concomitant]
     Indication: SUBSTANCE ABUSE
     Dosage: 7.5 [G/WK ]/ SOMETIMES ONLY 5G/WEEK
     Route: 048
     Dates: end: 20101209
  3. TRAMADOL HCL [Suspect]
     Indication: SUBSTANCE ABUSE
     Dosage: 1200 MILLIGRAM; 1200 [MG/D ]/ UNTIL ABORTION
     Route: 048
     Dates: end: 20101209
  4. CITALOPRAM HYDROBROMIDE [Suspect]
     Indication: DEPRESSION
     Dosage: 20 MILLIGRAM; 20 [MG/D ]/ UNTIL ABORTION
     Route: 048
     Dates: end: 20101209
  5. ENALAPRIL MALEATE [Suspect]
     Indication: HYPERTENSION
     Dosage: 5 MILLIGRAM; 5 [MG/D ]/ UNTIL ABORTION
     Route: 048
  6. AMLODIPINE [Suspect]
     Indication: HYPERTENSION
     Dosage: 10 MILLIGRAM; 10 [MG/D ]/ UNTIL ABORTION
     Route: 048

REACTIONS (1)
  - ABORTION SPONTANEOUS [None]
